FAERS Safety Report 17337447 (Version 4)
Quarter: 2020Q2

REPORT INFORMATION
  Report Type: Spontaneous
  Country: CA (occurrence: CA)
  Receive Date: 20200129
  Receipt Date: 20200427
  Transmission Date: 20200713
  Serious: Yes (Other)
  Sender: FDA-Public Use
  Company Number: CA-CELLTRION INC.-2020CA018060

PATIENT

DRUGS (12)
  1. METHYLPREDNISOLONE. [Concomitant]
     Active Substance: METHYLPREDNISOLONE
     Dosage: 100 MG, UNK
     Route: 042
     Dates: start: 20200407
  2. INFLECTRA [Suspect]
     Active Substance: INFLIXIMAB-DYYB
     Dosage: 250 MG, [Q 0, 2, 6 WEEKS THEN EVERY 8 WEEKS]
     Route: 042
     Dates: start: 20200116
  3. PREDNISONE. [Concomitant]
     Active Substance: PREDNISONE
     Dosage: 60 MG, UNK
     Route: 065
  4. DIPHENHYDRAMINE. [Concomitant]
     Active Substance: DIPHENHYDRAMINE
     Dosage: 50 MG, UNK
     Route: 048
     Dates: start: 20200407
  5. INFLECTRA [Suspect]
     Active Substance: INFLIXIMAB-DYYB
     Dosage: 250 MG, [Q 0, 2, 6 WEEKS THEN EVERY 8 WEEKS]
     Route: 042
     Dates: start: 20200213
  6. IMURAN [Concomitant]
     Active Substance: AZATHIOPRINE
     Dosage: 25 MG, 1X/DAY
     Route: 065
  7. INFLECTRA [Suspect]
     Active Substance: INFLIXIMAB-DYYB
     Dosage: 250 MG, [Q 0, 2, 6 WEEKS THEN EVERY 8 WEEKS]
     Route: 042
     Dates: start: 20200213
  8. INFLECTRA [Suspect]
     Active Substance: INFLIXIMAB-DYYB
     Dosage: 250 MG, [Q 0, 2, 6 WEEKS THEN EVERY 8 WEEKS]
     Route: 042
     Dates: start: 20200407
  9. DIPHENHYDRAMINE. [Concomitant]
     Active Substance: DIPHENHYDRAMINE
     Indication: PREMEDICATION
     Dosage: 50 MG, UNK
     Route: 048
  10. METHYLPREDNISOLONE. [Concomitant]
     Active Substance: METHYLPREDNISOLONE
     Indication: PREMEDICATION
     Dosage: 50 MG, UNK
     Route: 042
  11. INFLECTRA [Suspect]
     Active Substance: INFLIXIMAB-DYYB
     Indication: CROHN^S DISEASE
     Dosage: 250 MG, [Q 0, 2, 6 WEEKS THEN EVERY 8 WEEKS]
     Route: 042
     Dates: start: 20200102
  12. INFLECTRA [Suspect]
     Active Substance: INFLIXIMAB-DYYB
     Dosage: 250 MG, [Q 0, 2, 6 WEEKS THEN EVERY 8 WEEKS]
     Route: 042
     Dates: start: 20200116

REACTIONS (7)
  - Dizziness [Recovered/Resolved]
  - Malaise [Recovered/Resolved]
  - Nasopharyngitis [Recovered/Resolved]
  - Chest discomfort [Not Recovered/Not Resolved]
  - Flushing [Recovered/Resolved]
  - Visual impairment [Recovered/Resolved]
  - Heart rate irregular [Not Recovered/Not Resolved]

NARRATIVE: CASE EVENT DATE: 202001
